FAERS Safety Report 10012790 (Version 1)
Quarter: 2014Q1

REPORT INFORMATION
  Report Type: Spontaneous
  Country: US (occurrence: US)
  Receive Date: 20140314
  Receipt Date: 20140314
  Transmission Date: 20141002
  Serious: Yes (Other)
  Sender: FDA-Public Use
  Company Number: CHPA2014US003810

PATIENT
  Age: 74 Year
  Sex: Female

DRUGS (3)
  1. ASCRIPTIN BUFFERED REG STRENGTH TABLETS [Suspect]
     Indication: PALPITATIONS
     Dosage: 1 DF, PRN
     Route: 048
     Dates: start: 1983
  2. ASCRIPTIN BUFFERED REG STRENGTH TABLETS [Suspect]
     Indication: THROMBOSIS
     Dosage: 1 DF, BID
     Route: 048
     Dates: start: 1983
  3. ASCRIPTIN BUFFERED REG STRENGTH TABLETS [Suspect]
     Indication: OFF LABEL USE

REACTIONS (5)
  - Heart valve incompetence [Not Recovered/Not Resolved]
  - Cardiac fibrillation [Unknown]
  - Palpitations [Recovered/Resolved]
  - Incorrect drug administration duration [Unknown]
  - Expired drug administered [Unknown]
